FAERS Safety Report 5082085-5 (Version None)
Quarter: 2006Q3

REPORT INFORMATION
  Report Type: 
  Country: None (occurrence: None)
  Receive Date: 20060811
  Receipt Date: 20060731
  Transmission Date: 20061208
  Serious: Yes (Death)
  Sender: FDA-Public Use
  Company Number: 2006085755

PATIENT
  Age: 78 Year
  Sex: Male

DRUGS (6)
  1. ZYVOX [Suspect]
     Indication: PNEUMONIA
     Dosage: 1200 MG (1 D), INTRAVENOUS
     Route: 042
     Dates: start: 20060624, end: 20060709
  2. ZYVOX [Suspect]
     Indication: PYOTHORAX
     Dosage: 1200 MG (1 D), INTRAVENOUS
     Route: 042
     Dates: start: 20060624, end: 20060709
  3. ZYVOX [Suspect]
     Indication: STAPHYLOCOCCAL INFECTION
     Dosage: 1200 MG (1 D), INTRAVENOUS
     Route: 042
     Dates: start: 20060624, end: 20060709
  4. VANCOMYCIN [Concomitant]
  5. TEICOPLANIN (TEICOPLANIN) [Concomitant]
  6. ANTIPSYCHOTICS (ANTIPSYCHOTICS) [Concomitant]

REACTIONS (3)
  - AGGRESSION [None]
  - PNEUMONIA ASPIRATION [None]
  - PSYCHIATRIC SYMPTOM [None]
